FAERS Safety Report 9962150 (Version 1)
Quarter: 2014Q1

REPORT INFORMATION
  Report Type: Report from Study
  Country: US (occurrence: US)
  Receive Date: 20140305
  Receipt Date: 20140305
  Transmission Date: 20141002
  Serious: No
  Sender: FDA-Public Use
  Company Number: US-ABBVIE-13P-163-1116134-00

PATIENT
  Sex: Female
  Weight: 72.64 kg

DRUGS (8)
  1. HUMIRA [Suspect]
     Indication: PSORIATIC ARTHROPATHY
     Route: 058
     Dates: start: 201207, end: 201306
  2. HUMIRA [Suspect]
     Route: 058
  3. PLAQUENIL [Concomitant]
     Indication: PSORIATIC ARTHROPATHY
  4. CELL SPET [Concomitant]
     Indication: PSORIATIC ARTHROPATHY
  5. OXYCODONE [Concomitant]
     Indication: PAIN
  6. XANAX [Concomitant]
     Indication: ANXIETY
  7. CITALAPRAM [Concomitant]
     Indication: HYPERTENSION
  8. METOPROLOL [Concomitant]
     Indication: HYPERTENSION

REACTIONS (3)
  - Joint swelling [Recovering/Resolving]
  - Psoriasis [Recovering/Resolving]
  - Fatigue [Recovering/Resolving]
